FAERS Safety Report 6558352-2 (Version None)
Quarter: 2010Q1

REPORT INFORMATION
  Report Type: 
  Country: None (occurrence: None)
  Receive Date: 20100129
  Receipt Date: 20100118
  Transmission Date: 20100710
  Serious: Yes (Death, Other)
  Sender: FDA-Public Use
  Company Number: US-BAXTER-2009BH016532

PATIENT
  Age: 46 Year
  Sex: Male

DRUGS (6)
  1. HEPARIN SODIUM INJECTION [Suspect]
     Indication: DRUG USE FOR UNKNOWN INDICATION
     Route: 042
     Dates: start: 20071001
  2. OXYCODONE [Concomitant]
     Indication: PAIN
     Route: 042
  3. ATIVAN [Concomitant]
     Indication: ANXIETY
     Route: 042
  4. SCOPOLAMINE [Concomitant]
     Indication: DRUG USE FOR UNKNOWN INDICATION
     Route: 062
  5. ROBINUL [Concomitant]
     Indication: DRUG USE FOR UNKNOWN INDICATION
     Route: 042
  6. MORPHINE [Concomitant]
     Indication: PAIN
     Route: 042

REACTIONS (9)
  - BILE DUCT CANCER [None]
  - BLOOD PRESSURE DECREASED [None]
  - DYSPNOEA [None]
  - FATIGUE [None]
  - HEPATORENAL SYNDROME [None]
  - NAUSEA [None]
  - RENAL FAILURE ACUTE [None]
  - STENOTROPHOMONAS INFECTION [None]
  - UNRESPONSIVE TO STIMULI [None]
